FAERS Safety Report 8051089-2 (Version None)
Quarter: 2012Q1

REPORT INFORMATION
  Report Type: 
  Country: None (occurrence: None)
  Receive Date: 20120117
  Receipt Date: 20120112
  Transmission Date: 20120608
  Serious: Yes (Other)
  Sender: FDA-Public Use
  Company Number: US-PFIZER INC-2012009896

PATIENT
  Sex: Male
  Weight: 74.376 kg

DRUGS (1)
  1. TOVIAZ [Suspect]
     Indication: HYPERTONIC BLADDER
     Dosage: UNK, 1X/DAY
     Route: 048
     Dates: start: 20111101, end: 20120102

REACTIONS (2)
  - NASAL OPERATION [None]
  - DRY MOUTH [None]
